FAERS Safety Report 8365733-3 (Version None)
Quarter: 2012Q2

REPORT INFORMATION
  Report Type: 
  Country: None (occurrence: None)
  Receive Date: 20120516
  Receipt Date: 20090525
  Transmission Date: 20120825
  Serious: Yes (Disabling)
  Sender: FDA-Public Use
  Company Number: PHHY2009CH20050

PATIENT
  Sex: Female

DRUGS (5)
  1. CITALOPRAM HYDROBROMIDE [Concomitant]
  2. METOPROLOL TARTRATE AND HYDROCHLOROTHIAZIDE [Concomitant]
  3. ZOMETA [Suspect]
     Indication: METASTASES TO BONE
     Dosage: 4 MG, QMO
     Route: 042
     Dates: start: 20070101
  4. XELODA [Concomitant]
     Indication: BREAST CANCER
     Dates: start: 20080101, end: 20080101
  5. ASPIRIN [Concomitant]
     Dosage: 100 MG, PER DAY

REACTIONS (2)
  - OSTEONECROSIS OF JAW [None]
  - BONE DISORDER [None]
